FAERS Safety Report 12323230 (Version 2)
Quarter: 2016Q2

REPORT INFORMATION
  Report Type: Spontaneous
  Country: CH (occurrence: IT)
  Receive Date: 20160502
  Receipt Date: 20160510
  Transmission Date: 20160815
  Serious: Yes (Other)
  Sender: FDA-Public Use
  Company Number: CH-LPDUSPRD-20160372

PATIENT
  Age: 46 Year
  Sex: Female

DRUGS (1)
  1. FERINJECT [Suspect]
     Active Substance: FERRIC CARBOXYMALTOSE
     Dosage: 100 MG (2 ML)
     Route: 041
     Dates: start: 20160325, end: 20160405

REACTIONS (6)
  - Syncope [Unknown]
  - Gastrooesophageal reflux disease [Unknown]
  - Dyspnoea [Unknown]
  - Acute respiratory failure [Unknown]
  - Presyncope [Unknown]
  - Cough [Unknown]

NARRATIVE: CASE EVENT DATE: 20160325
